FAERS Safety Report 8110192-9 (Version None)
Quarter: 2012Q1

REPORT INFORMATION
  Report Type: 
  Country: None (occurrence: None)
  Receive Date: 20120202
  Receipt Date: 20120125
  Transmission Date: 20120608
  Serious: Yes (Hospitalization)
  Sender: FDA-Public Use
  Company Number: AU-ASTRAZENECA-2012SE00266

PATIENT
  Age: 40 Year
  Sex: Male

DRUGS (3)
  1. SEROQUEL [Suspect]
     Indication: AUTISM
     Dosage: 100 MG IN MORNING, 200 MG MIDDAY, 100 MG AT NIGHT
     Route: 048
  2. VALPROATE SODIUM [Concomitant]
  3. FLUOXETINE [Concomitant]

REACTIONS (2)
  - PNEUMONIA [None]
  - OFF LABEL USE [None]
